FAERS Safety Report 9802162 (Version 1)
Quarter: 2014Q1

REPORT INFORMATION
  Report Type: Spontaneous
  Country: BR (occurrence: BR)
  Receive Date: 20140107
  Receipt Date: 20140107
  Transmission Date: 20141002
  Serious: Yes (Hospitalization)
  Sender: FDA-Public Use
  Company Number: BR-B.I. PHARMACEUTICALS,INC./RIDGEFIELD-2014-BI-00475BR

PATIENT
  Age: 70 Year
  Sex: Female
  Weight: 105 kg

DRUGS (8)
  1. MICARDIS [Suspect]
     Indication: HYPERTENSION
     Dosage: 40 MG
     Route: 048
     Dates: start: 20131230, end: 20140105
  2. FENERGAN [Concomitant]
     Route: 042
     Dates: start: 20140105, end: 20140105
  3. CORTISONA [Concomitant]
     Route: 042
     Dates: start: 20140105, end: 20140105
  4. RIVOTRIL [Concomitant]
     Indication: SLEEP DISORDER
     Route: 048
     Dates: start: 2009
  5. SERTRALINA [Concomitant]
     Indication: HYPERTENSION
     Dosage: 1 ANZ
     Route: 048
     Dates: start: 2012
  6. GLIFAGE [Concomitant]
     Indication: TYPE 2 DIABETES MELLITUS
     Dosage: 1 ANZ
     Route: 048
  7. SIMVASTATINA [Concomitant]
     Indication: BLOOD CHOLESTEROL INCREASED
     Route: 048
  8. NIQUETAMIDA [Concomitant]
     Indication: RHEUMATIC DISORDER
     Route: 048

REACTIONS (5)
  - Blood pressure increased [Recovered/Resolved]
  - Swelling face [Recovered/Resolved]
  - Blister [Recovered/Resolved]
  - Visual impairment [Recovered/Resolved]
  - Vomiting [Recovered/Resolved]
